FAERS Safety Report 6637460-1 (Version None)
Quarter: 2010Q1

REPORT INFORMATION
  Report Type: 
  Country: None (occurrence: None)
  Receive Date: 20100311
  Receipt Date: 20100225
  Transmission Date: 20100710
  Serious: Yes (Life-Threatening, Other)
  Sender: FDA-Public Use
  Company Number: 006533

PATIENT
  Age: 63 Year
  Sex: Male

DRUGS (1)
  1. ALPROSTADIL [Suspect]
     Indication: ARTERIAL OCCLUSIVE DISEASE
     Dosage: (60 UG BID INTRAVENOUS DRIP)
     Route: 041
     Dates: start: 20100108, end: 20100121

REACTIONS (3)
  - HYPOXIA [None]
  - PULMONARY OEDEMA [None]
  - WEIGHT INCREASED [None]
